FAERS Safety Report 6178532-8 (Version None)
Quarter: 2009Q2

REPORT INFORMATION
  Report Type: 
  Country: None (occurrence: None)
  Receive Date: 20090430
  Receipt Date: 20090418
  Transmission Date: 20091009
  Serious: Yes (Death)
  Sender: FDA-Public Use
  Company Number: B0571701A

PATIENT
  Age: 64 Year
  Sex: Male

DRUGS (2)
  1. ROPINIROLE HYDROCHLORIDE [Suspect]
     Indication: PARKINSON'S DISEASE
  2. CO-CARELDOPA (FORMULATION UNKNOWN) (CO-CARELDOPA) [Suspect]
     Indication: PARKINSON'S DISEASE

REACTIONS (3)
  - COMPLETED SUICIDE [None]
  - DEPRESSION [None]
  - PATHOLOGICAL GAMBLING [None]
